FAERS Safety Report 12762496 (Version 1)
Quarter: 2016Q3

REPORT INFORMATION
  Report Type: Spontaneous
  Country: US (occurrence: US)
  Receive Date: 20160920
  Receipt Date: 20160920
  Transmission Date: 20161109
  Serious: No
  Sender: FDA-Public Use
  Company Number: US-PFIZER INC-2016434375

PATIENT
  Sex: Male

DRUGS (1)
  1. NEURONTIN [Suspect]
     Active Substance: GABAPENTIN
     Indication: DIABETIC NEUROPATHY
     Dosage: 900 MG, 3X/DAY (3X300MG TID, 2700 MG/DAY)

REACTIONS (4)
  - Herpes zoster [Unknown]
  - Product use issue [Unknown]
  - Tremor [Unknown]
  - Pyrexia [Unknown]
